FAERS Safety Report 9315944 (Version 1)
Quarter: 2013Q2

REPORT INFORMATION
  Report Type: Spontaneous
  Country: BR (occurrence: BR)
  Receive Date: 20130530
  Receipt Date: 20130530
  Transmission Date: 20140414
  Serious: Yes (Life-Threatening, Other)
  Sender: FDA-Public Use
  Company Number: BR-ROCHE-1230240

PATIENT
  Sex: 0

DRUGS (4)
  1. AVASTIN [Suspect]
     Indication: COLON CANCER METASTATIC
     Route: 065
  2. FOLINIC ACID [Suspect]
     Indication: COLON CANCER METASTATIC
     Route: 065
  3. FLUOROURACIL [Suspect]
     Indication: COLON CANCER METASTATIC
     Route: 065
  4. IRINOTECAN HYDROCHLORIDE [Suspect]
     Indication: COLON CANCER METASTATIC
     Route: 065

REACTIONS (2)
  - Disease progression [Unknown]
  - Gastrointestinal perforation [Unknown]
